FAERS Safety Report 23175485 (Version 1)
Quarter: 2023Q4

REPORT INFORMATION
  Report Type: Spontaneous
  Country: CA (occurrence: CA)
  Receive Date: 20231113
  Receipt Date: 20231113
  Transmission Date: 20240110
  Serious: Yes (Life-Threatening, Hospitalization, Other)
  Sender: FDA-Public Use
  Company Number: CA-SANDOZ-SDZ2023CA053271

PATIENT
  Sex: Female

DRUGS (6)
  1. LEVETIRACETAM [Suspect]
     Active Substance: LEVETIRACETAM
     Indication: Dyskinesia
     Dosage: 120 MG/KG TOTAL
     Route: 065
  2. LORAZEPAM [Suspect]
     Active Substance: LORAZEPAM
     Indication: Dyskinesia
     Dosage: 0.2 MG/KG, TOTAL
     Route: 065
  3. PHENOBARBITAL [Suspect]
     Active Substance: PHENOBARBITAL
     Indication: Dyskinesia
     Dosage: 80.0 MG/KG, TOTAL
     Route: 065
  4. ATROPINE [Concomitant]
     Active Substance: ATROPINE\ATROPINE SULFATE
     Indication: Endotracheal intubation
     Dosage: 0.01 MG/KG
     Route: 065
  5. FENTANYL [Concomitant]
     Active Substance: FENTANYL\FENTANYL CITRATE
     Indication: Endotracheal intubation
     Dosage: 2 UG/KG
     Route: 065
  6. SUCCINYLCHOLINE [Concomitant]
     Active Substance: SUCCINYLCHOLINE
     Indication: Endotracheal intubation
     Dosage: 2 MG/KG
     Route: 065

REACTIONS (3)
  - Respiratory failure [Unknown]
  - Apnoea [Unknown]
  - Off label use [Unknown]
